FAERS Safety Report 6061784-2 (Version None)
Quarter: 2009Q1

REPORT INFORMATION
  Report Type: 
  Country: None (occurrence: None)
  Receive Date: 20090202
  Receipt Date: 20090128
  Transmission Date: 20090719
  Serious: Yes (Other)
  Sender: FDA-Public Use
  Company Number: GB-ABBOTT-09P-167-0500434-00

PATIENT
  Age: 76 Year
  Sex: Male

DRUGS (5)
  1. KLARICID [Suspect]
     Indication: PNEUMONIA ASPIRATION
     Dates: start: 20081209, end: 20081215
  2. CO-AMOXICLAV (NON-ABBOTT) [Suspect]
     Indication: PNEUMONIA ASPIRATION
     Dates: start: 20081203, end: 20081215
  3. SIMVASTATIN [Concomitant]
     Indication: CEREBROVASCULAR ACCIDENT
  4. OMEPRAZOLE [Concomitant]
     Indication: HELICOBACTER PYLORI IDENTIFICATION TEST POSITIVE
  5. FUROSEMIDE [Concomitant]
     Indication: LEFT VENTRICULAR FAILURE
     Dates: start: 20081211

REACTIONS (1)
  - LIVER FUNCTION TEST ABNORMAL [None]
